FAERS Safety Report 4756727-5 (Version None)
Quarter: 2005Q3

REPORT INFORMATION
  Report Type: 
  Country: None (occurrence: None)
  Receive Date: 20050830
  Receipt Date: 20050329
  Transmission Date: 20060218
  Serious: Yes (Hospitalization)
  Sender: FDA-Public Use
  Company Number: FR-SANOFI-SYNTHELABO-A02200500844

PATIENT
  Age: 78 Year
  Sex: Male
  Weight: 51 kg

DRUGS (8)
  1. DEPAKENE [Suspect]
     Indication: DRUG USE FOR UNKNOWN INDICATION
     Route: 048
     Dates: start: 20040101, end: 20050222
  2. DEPAKENE [Suspect]
     Route: 042
     Dates: start: 20050223, end: 20050228
  3. PLAVIX [Suspect]
     Indication: DRUG USE FOR UNKNOWN INDICATION
     Route: 048
     Dates: end: 20050222
  4. ISOPTIN [Suspect]
     Indication: DRUG USE FOR UNKNOWN INDICATION
     Route: 048
     Dates: end: 20050223
  5. ATHYMIL [Suspect]
     Indication: DEPRESSION
     Route: 048
     Dates: start: 20050111, end: 20050222
  6. EBIXA [Suspect]
     Indication: ABNORMAL BEHAVIOUR
     Route: 048
     Dates: start: 20050211, end: 20050217
  7. CLOZAPINE [Suspect]
     Indication: DRUG USE FOR UNKNOWN INDICATION
     Route: 048
     Dates: start: 20041115, end: 20050217
  8. AUGMENTIN '125' [Concomitant]
     Dosage: UNK
     Route: 065
     Dates: start: 20050217

REACTIONS (1)
  - NORMOCHROMIC NORMOCYTIC ANAEMIA [None]
